FAERS Safety Report 5903456-8 (Version None)
Quarter: 2008Q3

REPORT INFORMATION
  Report Type: 
  Country: None (occurrence: None)
  Receive Date: 20080930
  Receipt Date: 20080922
  Transmission Date: 20090109
  Serious: Yes (Death)
  Sender: FDA-Public Use
  Company Number: AU-PURDUE-USA_2008_0035059

PATIENT
  Age: 88 Year
  Sex: Female

DRUGS (2)
  1. OXYCONTIN [Suspect]
     Indication: DRUG USE FOR UNKNOWN INDICATION
     Dosage: 10 MG, UNK
     Route: 048
     Dates: start: 20080311, end: 20080316
  2. LASIX [Suspect]
     Indication: OEDEMA
     Dosage: 40 MG, UNK
     Route: 048
     Dates: start: 20080310, end: 20080311

REACTIONS (3)
  - DEATH [None]
  - PRURITUS GENERALISED [None]
  - RASH MACULO-PAPULAR [None]
